FAERS Safety Report 10053017 (Version 3)
Quarter: 2014Q2

REPORT INFORMATION
  Report Type: Report from Study
  Country: DE (occurrence: DE)
  Receive Date: 20140402
  Receipt Date: 20140415
  Transmission Date: 20141212
  Serious: Yes (Other)
  Sender: FDA-Public Use
  Company Number: PHHO2014DE004544

PATIENT
  Sex: 0

DRUGS (3)
  1. ACETYLSALICYLIC ACID [Suspect]
     Indication: CORONARY ARTERY DISEASE
     Dosage: 100 MG, QD
     Route: 048
     Dates: start: 20140212
  2. CLOPIDOGREL [Suspect]
     Indication: CORONARY ARTERY DISEASE
     Dosage: 75 MG, QD
     Route: 048
     Dates: start: 20140212
  3. AIN457 [Suspect]
     Indication: PSORIASIS
     Dosage: CODE NOT BROKEN (DOSE BLINDED)
     Route: 058
     Dates: start: 20111129

REACTIONS (1)
  - Hepatic enzyme increased [Recovered/Resolved]
